FAERS Safety Report 8465375-5 (Version None)
Quarter: 2012Q2

REPORT INFORMATION
  Report Type: 
  Country: None (occurrence: None)
  Receive Date: 20120323
  Receipt Date: 20110922
  Transmission Date: 20120825
  Serious: Yes (Other)
  Sender: FDA-Public Use
  Company Number: 163-21880-11093282

PATIENT
  Age: 70 Year
  Sex: Male

DRUGS (9)
  1. TOPIRAMATE [Concomitant]
  2. DEXAMETHASONE [Concomitant]
  3. REVLIMID [Suspect]
     Indication: MULTIPLE MYELOMA
     Dosage: 10 MG, DAILY FOR 21 DAYS, PO
     Route: 048
     Dates: start: 20110321
  4. FLOMAX [Concomitant]
  5. ZYRTEC ALLERGY (CETIRIZINE HYDROCHLORIDE) [Concomitant]
  6. LOW DOSE ASPIRIN (ACETYLSALICYLIC ACID) [Concomitant]
  7. POLYETHYLENE GLYCOL 600 (MACROGOL) [Concomitant]
  8. LOVAZA [Concomitant]
  9. MIRALAX [Concomitant]

REACTIONS (1)
  - PULMONARY EMBOLISM [None]
